FAERS Safety Report 9027980 (Version 2)
Quarter: 2013Q1

REPORT INFORMATION
  Report Type: Spontaneous
  Country: FR (occurrence: FR)
  Receive Date: 20130123
  Receipt Date: 20130131
  Transmission Date: 20140127
  Serious: No
  Sender: FDA-Public Use
  Company Number: PHHY2013FR005216

PATIENT
  Age: 62 Year
  Sex: Male
  Weight: 64 kg

DRUGS (2)
  1. ONBREZ [Suspect]
     Indication: CHRONIC OBSTRUCTIVE PULMONARY DISEASE
     Dosage: 1 DF, QD
     Dates: start: 20120710
  2. ANTIBIOTICS [Concomitant]

REACTIONS (1)
  - Haemoptysis [Recovered/Resolved]
